FAERS Safety Report 15578319 (Version 1)
Quarter: 2018Q4

REPORT INFORMATION
  Report Type: Spontaneous
  Country: US (occurrence: US)
  Receive Date: 20181102
  Receipt Date: 20181102
  Transmission Date: 20190205
  Serious: No
  Sender: FDA-Public Use
  Company Number: US-CHARTWELL PHARMA-2058327

PATIENT
  Age: 81 Year
  Sex: Male
  Weight: 75.3 kg

DRUGS (6)
  1. GABAPENTIN. [Concomitant]
     Active Substance: GABAPENTIN
     Dates: end: 20180619
  2. DOXYCYCLINE HYCLATE. [Suspect]
     Active Substance: DOXYCYCLINE HYCLATE
     Indication: LYME DISEASE
     Route: 048
     Dates: start: 20180611, end: 20180619
  3. CALCIUM GLUCONATE. [Concomitant]
     Active Substance: CALCIUM GLUCONATE
     Dates: end: 20180619
  4. ACETYL L CARNITINE [Concomitant]
     Dates: end: 20180619
  5. ZANTAC [Concomitant]
     Active Substance: RANITIDINE HYDROCHLORIDE
     Dates: end: 20180619
  6. MAGNESIUM [Concomitant]
     Active Substance: MAGNESIUM
     Dates: end: 20180619

REACTIONS (3)
  - Abdominal discomfort [Recovered/Resolved]
  - Condition aggravated [Recovered/Resolved]
  - Intentional product misuse [Unknown]
